FAERS Safety Report 8068313-2 (Version None)
Quarter: 2012Q1

REPORT INFORMATION
  Report Type: 
  Country: None (occurrence: None)
  Receive Date: 20120124
  Receipt Date: 20111013
  Transmission Date: 20120608
  Serious: No
  Sender: FDA-Public Use
  Company Number: US-AMGEN-USASP2011053222

PATIENT
  Age: 78 Year
  Sex: Female

DRUGS (13)
  1. ASACOL [Concomitant]
     Dosage: 800 MG, BID
  2. PLAVIX [Concomitant]
     Dosage: UNK
  3. OXYBUTYNIN [Concomitant]
     Dosage: UNK
  4. VALCYTE [Suspect]
     Indication: CYTOMEGALOVIRUS INFECTION
     Dosage: UNK
     Dates: start: 20110501, end: 20110101
  5. ACYCLOVIR [Concomitant]
  6. DERMATOLOGICALS [Concomitant]
     Indication: RASH
     Dosage: UNK
  7. METOPROLOL TARTRATE [Concomitant]
     Dosage: UNK
  8. PREDNISOLONE [Concomitant]
     Dosage: UNK
  9. LEVOTHYROXINE SODIUM [Concomitant]
     Dosage: UNK
  10. CELLUVISC [Concomitant]
     Dosage: UNK
  11. VARICELLA-ZOSTER IMMUNE GLOBULIN (HUMAN) [Concomitant]
     Dosage: UNK
     Dates: start: 20110801
  12. PROLIA [Suspect]
     Indication: OSTEOPOROSIS POSTMENOPAUSAL
     Dosage: 60 MG, UNK
     Dates: start: 20110201
  13. MULTI-VITAMINS [Concomitant]
     Dosage: UNK

REACTIONS (4)
  - COLITIS ULCERATIVE [None]
  - RASH PRURITIC [None]
  - BURSITIS [None]
  - CYTOMEGALOVIRUS INFECTION [None]
